APPROVED DRUG PRODUCT: CHLORPROMAZINE HYDROCHLORIDE
Active Ingredient: CHLORPROMAZINE HYDROCHLORIDE
Strength: 200MG
Dosage Form/Route: TABLET;ORAL
Application: A213327 | Product #005 | TE Code: AB
Applicant: LUPIN INC
Approved: Jul 13, 2023 | RLD: No | RS: No | Type: RX